FAERS Safety Report 15275011 (Version 5)
Quarter: 2019Q1

REPORT INFORMATION
  Report Type: Spontaneous
  Country: US (occurrence: US)
  Receive Date: 20180814
  Receipt Date: 20190320
  Transmission Date: 20190417
  Serious: No
  Sender: FDA-Public Use
  Company Number: US-PFIZER INC-2018325359

PATIENT
  Age: 53 Year
  Sex: Male
  Weight: 117.91 kg

DRUGS (1)
  1. LYRICA [Suspect]
     Active Substance: PREGABALIN
     Indication: BACK PAIN
     Dosage: 75 MG, TWICE A DAY [1 CAPSULE 2 TIMES A DAY]
     Route: 048

REACTIONS (1)
  - Withdrawal syndrome [Unknown]
